FAERS Safety Report 9565596 (Version 1)
Quarter: 2013Q3

REPORT INFORMATION
  Report Type: Report from Study
  Country: CA (occurrence: CA)
  Receive Date: 20130930
  Receipt Date: 20130930
  Transmission Date: 20140515
  Serious: Yes (Hospitalization)
  Sender: FDA-Public Use
  Company Number: CA-JNJFOC-20130914902

PATIENT
  Age: 52 Year
  Sex: Female
  Weight: 78 kg

DRUGS (2)
  1. REMICADE [Suspect]
     Indication: CROHN^S DISEASE
     Route: 042
     Dates: start: 20110921
  2. IMURAN [Concomitant]
     Route: 065

REACTIONS (3)
  - Post procedural haemorrhage [Not Recovered/Not Resolved]
  - Parathyroidectomy [Not Recovered/Not Resolved]
  - Thyroidectomy [Not Recovered/Not Resolved]
